FAERS Safety Report 13144997 (Version 6)
Quarter: 2018Q2

REPORT INFORMATION
  Report Type: Other
  Country: NO (occurrence: NO)
  Receive Date: 20170124
  Receipt Date: 20180422
  Transmission Date: 20180711
  Serious: Yes (Hospitalization, Other)
  Sender: FDA-Public Use
  Company Number: NO-APOTEX-2017AP005985

PATIENT
  Age: 20 Year
  Sex: Male

DRUGS (16)
  1. ORFIRIL [Suspect]
     Active Substance: VALPROATE SODIUM
     Indication: ACUTE PSYCHOSIS
  2. SOBRIL [Suspect]
     Active Substance: OXAZEPAM
     Indication: PRODUCT USED FOR UNKNOWN INDICATION
     Dosage: UNK, PRN
     Route: 065
     Dates: start: 2013
  3. LITHIUM. [Concomitant]
     Active Substance: LITHIUM
     Dosage: UNK
     Dates: start: 2010
  4. SEROXAT [Suspect]
     Active Substance: PAROXETINE HYDROCHLORIDE
     Indication: DEPRESSION
     Dosage: UNK
     Route: 065
     Dates: start: 19950601
  5. SEROXAT [Suspect]
     Active Substance: PAROXETINE HYDROCHLORIDE
     Dosage: 20 MG, QD
     Route: 065
     Dates: start: 19960529
  6. CIPRAMIL                           /00582602/ [Suspect]
     Active Substance: CITALOPRAM HYDROBROMIDE
     Indication: PRODUCT USED FOR UNKNOWN INDICATION
     Dosage: 10-60 MG DAILY
     Route: 065
     Dates: start: 2003, end: 2010
  7. ZYPREXA [Suspect]
     Active Substance: OLANZAPINE
     Indication: ACUTE PSYCHOSIS
     Dosage: UNK
     Route: 065
     Dates: start: 201505
  8. LITHIONIT [Suspect]
     Active Substance: LITHIUM SULFATE
     Indication: PRODUCT USED FOR UNKNOWN INDICATION
     Dosage: UNK
     Route: 065
     Dates: start: 201505
  9. LAMICTAL [Suspect]
     Active Substance: LAMOTRIGINE
     Indication: BIPOLAR DISORDER
     Dosage: UNK
     Route: 065
     Dates: start: 201104
  10. SEROQUEL [Suspect]
     Active Substance: QUETIAPINE FUMARATE
     Dosage: UNK
     Route: 065
     Dates: start: 201505, end: 201605
  11. LAMICTAL [Suspect]
     Active Substance: LAMOTRIGINE
     Indication: DEPRESSION
  12. SEROQUEL [Suspect]
     Active Substance: QUETIAPINE FUMARATE
     Indication: PRODUCT USED FOR UNKNOWN INDICATION
     Dosage: UNK
     Route: 065
     Dates: start: 201007
  13. ORFIRIL [Suspect]
     Active Substance: VALPROATE SODIUM
     Indication: BIPOLAR DISORDER
     Dosage: UNK
     Route: 065
     Dates: start: 201007
  14. EFEXOR [Suspect]
     Active Substance: VENLAFAXINE HYDROCHLORIDE
     Indication: DEPRESSION
     Dosage: UNK
     Route: 065
     Dates: end: 20160725
  15. CIPRALEX [Suspect]
     Active Substance: ESCITALOPRAM OXALATE
     Indication: PRODUCT USED FOR UNKNOWN INDICATION
     Dosage: UNK
     Route: 065
     Dates: start: 201505
  16. ZYPREXA [Suspect]
     Active Substance: OLANZAPINE
     Indication: BIPOLAR DISORDER
     Dosage: UNK
     Route: 065
     Dates: start: 201007

REACTIONS (35)
  - Disturbance in social behaviour [Unknown]
  - Hypomania [Unknown]
  - Stress [Unknown]
  - Depression [Unknown]
  - Restlessness [Unknown]
  - Dizziness [Not Recovered/Not Resolved]
  - Drug ineffective [Unknown]
  - Psychotic disorder [Unknown]
  - Suicidal ideation [Unknown]
  - Impulse-control disorder [Unknown]
  - Impaired work ability [Unknown]
  - Agitation [Unknown]
  - Bipolar disorder [Unknown]
  - Personality disorder [Unknown]
  - Memory impairment [Unknown]
  - Head injury [Unknown]
  - Quality of life decreased [Unknown]
  - Judgement impaired [Unknown]
  - Disturbance in attention [Unknown]
  - Anxiety [Unknown]
  - Speech disorder [Unknown]
  - Feeling abnormal [Unknown]
  - Logorrhoea [Unknown]
  - Hyperhidrosis [Unknown]
  - Derealisation [Unknown]
  - Balance disorder [Unknown]
  - Mania [Unknown]
  - Malaise [Unknown]
  - Aggression [Unknown]
  - Abnormal behaviour [Unknown]
  - Hypomania [Unknown]
  - Irritability [Unknown]
  - Drug abuse [Unknown]
  - Mania [Unknown]
  - Aggression [Unknown]

NARRATIVE: CASE EVENT DATE: 1995
